FAERS Safety Report 21334279 (Version 1)
Quarter: 2022Q3

REPORT INFORMATION
  Report Type: Spontaneous
  Country: MX (occurrence: MX)
  Receive Date: 20220914
  Receipt Date: 20220914
  Transmission Date: 20221027
  Serious: Yes (Death, Other)
  Sender: FDA-Public Use
  Company Number: MX-SA-SAC20220912001693

PATIENT

DRUGS (1)
  1. LARONIDASE [Suspect]
     Active Substance: LARONIDASE
     Indication: Mucopolysaccharidosis I
     Dosage: UNK
     Route: 065
     Dates: end: 20220909

REACTIONS (2)
  - Cardiac arrest [Fatal]
  - Pneumonia [Fatal]

NARRATIVE: CASE EVENT DATE: 20220908
